FAERS Safety Report 9204399 (Version 1)
Quarter: 2013Q2

REPORT INFORMATION
  Report Type: Spontaneous
  Country: US (occurrence: US)
  Receive Date: 20130402
  Receipt Date: 20130402
  Transmission Date: 20140414
  Serious: Yes (Death)
  Sender: FDA-Public Use
  Company Number: US-PFIZER INC-2013101964

PATIENT
  Age: 70 Year
  Sex: Female

DRUGS (1)
  1. CHLOROMYCETIN [Suspect]
     Dosage: 20 MG/DAY
     Route: 042

REACTIONS (2)
  - Accidental overdose [Fatal]
  - Drug label confusion [Fatal]
